FAERS Safety Report 8126603-9 (Version None)
Quarter: 2012Q1

REPORT INFORMATION
  Report Type: 
  Country: None (occurrence: None)
  Receive Date: 20120210
  Receipt Date: 20120202
  Transmission Date: 20120608
  Serious: Yes (Other)
  Sender: FDA-Public Use
  Company Number: US-BIOGENIDEC-2012BI002504

PATIENT
  Sex: Male

DRUGS (2)
  1. AVONEX [Suspect]
     Indication: MULTIPLE SCLEROSIS
     Route: 030
     Dates: start: 20080207, end: 20090730
  2. AVONEX [Suspect]
     Route: 030
     Dates: start: 20101119

REACTIONS (4)
  - AMNESIA [None]
  - RENAL FAILURE [None]
  - DIABETES MELLITUS [None]
  - BLINDNESS UNILATERAL [None]
